FAERS Safety Report 24816236 (Version 3)
Quarter: 2025Q1

REPORT INFORMATION
  Report Type: Spontaneous
  Country: US (occurrence: US)
  Receive Date: 20250107
  Receipt Date: 20250128
  Transmission Date: 20250409
  Serious: Yes (Death, Hospitalization)
  Sender: NOVO NORDISK
  Company Number: US-NOVOPROD-1327885

PATIENT
  Age: 77 Year
  Sex: Female

DRUGS (1)
  1. TRESIBA [Suspect]
     Active Substance: INSULIN DEGLUDEC
     Indication: Product used for unknown indication
     Dosage: 40 IU, BID
     Route: 058

REACTIONS (4)
  - Death [Fatal]
  - Gait inability [Not Recovered/Not Resolved]
  - Fall [Recovered/Resolved]
  - Off label use [Not Recovered/Not Resolved]

NARRATIVE: CASE EVENT DATE: 20210101
